FAERS Safety Report 9009798 (Version 1)
Quarter: 2013Q1

REPORT INFORMATION
  Report Type: Spontaneous
  Country: FR (occurrence: FR)
  Receive Date: 20130110
  Receipt Date: 20130110
  Transmission Date: 20140127
  Serious: Yes (Hospitalization)
  Sender: FDA-Public Use
  Company Number: FR-US-EMD SERONO, INC.-7185815

PATIENT
  Age: 31 Year
  Sex: Female

DRUGS (3)
  1. GONAL-F [Suspect]
     Indication: IN VITRO FERTILISATION
     Route: 058
     Dates: start: 20120223, end: 20120302
  2. GONADOTROPHIN, CHORIONIC [Suspect]
     Indication: IN VITRO FERTILISATION
     Route: 030
     Dates: start: 20120303, end: 20120304
  3. DECAPEPTYL [Suspect]
     Indication: IN VITRO FERTILISATION
     Route: 058
     Dates: start: 20120208, end: 20120302

REACTIONS (5)
  - Pelvic fluid collection [Recovered/Resolved]
  - Ovarian hyperstimulation syndrome [Recovered/Resolved]
  - Maternal exposure before pregnancy [None]
  - Twin pregnancy [None]
  - Haematocrit decreased [None]
